FAERS Safety Report 16777901 (Version 2)
Quarter: 2019Q3

REPORT INFORMATION
  Report Type: Spontaneous
  Country: CL (occurrence: CL)
  Receive Date: 20190905
  Receipt Date: 20190911
  Transmission Date: 20191005
  Serious: Yes (Other)
  Sender: FDA-Public Use
  Company Number: CL-009507513-1901CHL000220

PATIENT
  Age: 23 Year
  Sex: Female
  Weight: 63 kg

DRUGS (1)
  1. IMPLANON [Suspect]
     Active Substance: ETONOGESTREL
     Indication: CONTRACEPTION
     Dosage: 1 IMPLANT, IN THE LEFT ARM FOR 3 YEARS
     Dates: start: 20160809, end: 20190828

REACTIONS (11)
  - Blood loss anaemia [Unknown]
  - Iron deficiency anaemia [Unknown]
  - Complication of device removal [Recovered/Resolved]
  - Product administration error [Unknown]
  - Menorrhagia [Unknown]
  - Device dislocation [Recovered/Resolved]
  - Weight increased [Not Recovered/Not Resolved]
  - Incorrect product administration duration [Unknown]
  - Metrorrhagia [Unknown]
  - Complication associated with device [Recovered/Resolved]
  - Device deployment issue [Recovered/Resolved]

NARRATIVE: CASE EVENT DATE: 20160809
